FAERS Safety Report 18651271 (Version 2)
Quarter: 2021Q1

REPORT INFORMATION
  Report Type: Spontaneous
  Country: US (occurrence: US)
  Receive Date: 20201222
  Receipt Date: 20210106
  Transmission Date: 20210419
  Serious: Yes (Hospitalization, Other)
  Sender: FDA-Public Use
  Company Number: US-009507513-2012USA008307

PATIENT
  Age: 31 Year
  Sex: Female
  Weight: 94.79 kg

DRUGS (2)
  1. NUVARING [Suspect]
     Active Substance: ETHINYL ESTRADIOL\ETONOGESTREL
     Indication: CONTRACEPTION
     Dosage: 1 RING, Q3W (1 TIME EVERY THREE WEEKS)
     Route: 067
     Dates: start: 2010
  2. TEMAZEPAM. [Suspect]
     Active Substance: TEMAZEPAM
     Dosage: UNK

REACTIONS (8)
  - Streptococcal sepsis [Unknown]
  - Product quality issue [Unknown]
  - Disseminated intravascular coagulation [Unknown]
  - Inappropriate schedule of product administration [Unknown]
  - Pregnancy with contraceptive device [Recovered/Resolved]
  - Unintended pregnancy [Recovered/Resolved]
  - Headache [Unknown]
  - Breast pain [Unknown]

NARRATIVE: CASE EVENT DATE: 20190731
